FAERS Safety Report 14691089 (Version 1)
Quarter: 2018Q1

REPORT INFORMATION
  Report Type: Spontaneous
  Country: US (occurrence: US)
  Receive Date: 20180327
  Receipt Date: 20180327
  Transmission Date: 20180509
  Serious: No
  Sender: FDA-Public Use
  Company Number: None

PATIENT
  Sex: Female
  Weight: 68.04 kg

DRUGS (1)
  1. RASUVO [Suspect]
     Active Substance: METHOTREXATE SODIUM
     Indication: RHEUMATOID ARTHRITIS
     Dosage: 25 MG (0.5 ML) Q WEEK SUBQ
     Route: 058
     Dates: start: 201703

REACTIONS (3)
  - Musculoskeletal disorder [None]
  - Gait inability [None]
  - Condition aggravated [None]
